FAERS Safety Report 25377481 (Version 1)
Quarter: 2025Q2

REPORT INFORMATION
  Report Type: Spontaneous
  Country: US (occurrence: US)
  Receive Date: 20250530
  Receipt Date: 20250530
  Transmission Date: 20250716
  Serious: Yes (Other)
  Sender: NOVEN
  Company Number: US-NOVEN PHARMACEUTICALS, INC.-2024-NOV-US001473

PATIENT
  Age: 61 Year
  Sex: Female
  Weight: 72.562 kg

DRUGS (1)
  1. COMBIPATCH [Suspect]
     Active Substance: ESTRADIOL\NORETHINDRONE ACETATE
     Indication: Menopausal symptoms
     Route: 062
     Dates: start: 20241029

REACTIONS (4)
  - Bowen^s disease [Recovered/Resolved]
  - Intermenstrual bleeding [Recovered/Resolved]
  - Product storage error [Recovered/Resolved]
  - Product residue present [Not Recovered/Not Resolved]

NARRATIVE: CASE EVENT DATE: 20241001
